FAERS Safety Report 18032895 (Version 1)
Quarter: 2020Q3

REPORT INFORMATION
  Report Type: Spontaneous
  Country: US (occurrence: US)
  Receive Date: 20200716
  Receipt Date: 20200716
  Transmission Date: 20201103
  Serious: No
  Sender: FDA-Public Use
  Company Number: US-ELI_LILLY_AND_COMPANY-US202007003106

PATIENT
  Sex: Female

DRUGS (4)
  1. EMGALITY [Suspect]
     Active Substance: GALCANEZUMAB-GNLM
     Indication: MIGRAINE PROPHYLAXIS
     Dosage: 100 MG, SINGLE
     Route: 065
     Dates: start: 202002
  2. EMGALITY [Suspect]
     Active Substance: GALCANEZUMAB-GNLM
     Dosage: 100 MG, MONTHLY (1/M)
     Route: 065
  3. EMGALITY [Suspect]
     Active Substance: GALCANEZUMAB-GNLM
     Indication: MIGRAINE PROPHYLAXIS
     Dosage: 100 MG, SINGLE
     Route: 065
     Dates: start: 202002
  4. EMGALITY [Suspect]
     Active Substance: GALCANEZUMAB-GNLM
     Dosage: 100 MG, MONTHLY (1/M)
     Route: 065

REACTIONS (6)
  - Nausea [Unknown]
  - Weight increased [Unknown]
  - Abdominal pain upper [Unknown]
  - Underdose [Unknown]
  - Migraine [Unknown]
  - Constipation [Unknown]
